FAERS Safety Report 11326567 (Version 1)
Quarter: 2015Q3

REPORT INFORMATION
  Report Type: Spontaneous
  Country: GB (occurrence: None)
  Receive Date: 20150729
  Receipt Date: 20150729
  Transmission Date: 20151125
  Serious: Yes (Other)
  Sender: FDA-Public Use
  Company Number: 2015GR_BP004364

PATIENT
  Age: 71 Year
  Sex: Male

DRUGS (12)
  1. GABAPENTIN. [Concomitant]
     Active Substance: GABAPENTIN
  2. SILDENAFIL. [Concomitant]
     Active Substance: SILDENAFIL
  3. BUPRENORPHINE. [Concomitant]
     Active Substance: BUPRENORPHINE
  4. FINASTERIDE (FINASTERIDE) [Suspect]
     Active Substance: FINASTERIDE
     Indication: BENIGN PROSTATIC HYPERPLASIA
     Dosage: 5 MG (5 MG, ONCE DAILY)
     Dates: start: 201505
  5. MACROGOL [Concomitant]
     Active Substance: POLYETHYLENE GLYCOLS
  6. PARACETAMOL [Concomitant]
     Active Substance: ACETAMINOPHEN
  7. ZOLPIDEM [Concomitant]
     Active Substance: ZOLPIDEM\ZOLPIDEM TARTRATE
  8. METFORMIN [Concomitant]
     Active Substance: METFORMIN HYDROCHLORIDE
  9. PRIMIDONE. [Concomitant]
     Active Substance: PRIMIDONE
  10. WARFARIN [Suspect]
     Active Substance: WARFARIN
     Indication: ATRIAL FIBRILLATION
     Dosage: 4 MG (4 MG, ONCE DAILY)
     Dates: start: 2013
  11. FERROUS SULFATE [Concomitant]
     Active Substance: FERROUS SULFATE\FERROUS SULFATE, DRIED
  12. RAMIPRIL. [Concomitant]
     Active Substance: RAMIPRIL

REACTIONS (2)
  - International normalised ratio decreased [None]
  - Drug interaction [None]

NARRATIVE: CASE EVENT DATE: 201505
